FAERS Safety Report 15446613 (Version 2)
Quarter: 2018Q4

REPORT INFORMATION
  Report Type: Spontaneous
  Country: GB (occurrence: GB)
  Receive Date: 20180928
  Receipt Date: 20181008
  Transmission Date: 20190204
  Serious: Yes (Hospitalization)
  Sender: FDA-Public Use
  Company Number: GB-JNJFOC-20180922342

PATIENT
  Age: 2 Year
  Sex: Female

DRUGS (1)
  1. PARACETAMOL 120MG/5ML ORAL SUSPENSION [Suspect]
     Active Substance: ACETAMINOPHEN
     Indication: ACCIDENTAL EXPOSURE TO PRODUCT BY CHILD
     Dosage: 100ML INGESTED
     Route: 048
     Dates: start: 20180829, end: 20180829

REACTIONS (10)
  - Accidental exposure to product by child [Recovered/Resolved]
  - Malaise [Recovered/Resolved]
  - Accidental overdose [Recovered/Resolved]
  - Accidental poisoning [Recovered/Resolved]
  - Accidental exposure to product packaging by child [Recovered/Resolved]
  - Product closure issue [Recovered/Resolved]
  - Product quality issue [Recovered/Resolved]
  - Somnolence [Recovered/Resolved]
  - Pallor [Recovered/Resolved]
  - Ocular hyperaemia [Recovered/Resolved]

NARRATIVE: CASE EVENT DATE: 20180829
